FAERS Safety Report 4877724-5 (Version None)
Quarter: 2006Q1

REPORT INFORMATION
  Report Type: 
  Country: None (occurrence: None)
  Receive Date: 20060109
  Receipt Date: 20051227
  Transmission Date: 20060701
  Serious: Yes (Other)
  Sender: FDA-Public Use
  Company Number: 2006000232

PATIENT
  Sex: Male
  Weight: 74.8435 kg

DRUGS (7)
  1. LIPITOR [Suspect]
     Indication: BLOOD CHOLESTEROL INCREASED
     Dosage: 10 MG (10 MG, 1 IN 1 D), ORAL
     Route: 048
  2. TERAZOSIN (TERAZOSIN) [Suspect]
     Indication: HYPERTENSION
     Dosage: ORAL
     Route: 048
  3. TERAZOSIN (TERAZOSIN) [Suspect]
     Indication: PROSTATE EXAMINATION ABNORMAL
     Dosage: ORAL
     Route: 048
  4. FISH OIL (FISH OIL) [Suspect]
     Indication: ILL-DEFINED DISORDER
     Dosage: ORAL
     Route: 048
  5. TOPROL-XL [Suspect]
     Indication: BLOOD PRESSURE ABNORMAL
     Dosage: ORAL
     Route: 048
  6. TOPROL-XL [Suspect]
     Indication: CARDIAC DISORDER
     Dosage: ORAL
     Route: 048
  7. NIACIN [Suspect]
     Indication: PEMPHIGOID

REACTIONS (5)
  - DRUG INTERACTION [None]
  - HYPERTENSION [None]
  - MALAISE [None]
  - PEMPHIGOID [None]
  - VASCULAR BYPASS GRAFT [None]
